FAERS Safety Report 8525997-X (Version None)
Quarter: 2012Q3

REPORT INFORMATION
  Report Type: 
  Country: None (occurrence: None)
  Receive Date: 20120720
  Receipt Date: 20120711
  Transmission Date: 20120928
  Serious: Yes (Death)
  Sender: FDA-Public Use
  Company Number: AR-ABBOTT-12P-007-0947781-00

PATIENT
  Sex: Female

DRUGS (6)
  1. TRIMETHOPRIM + SULFAMETHOXAZOLE [Concomitant]
     Indication: PROPHYLAXIS
  2. AZITHROMYCIN [Concomitant]
     Indication: PROPHYLAXIS
  3. LAMIVUDINE [Concomitant]
     Indication: HIV INFECTION
     Route: 048
     Dates: start: 20120605, end: 20120627
  4. AZITHROMYCIN [Concomitant]
     Indication: MYCOBACTERIUM AVIUM COMPLEX INFECTION
     Route: 048
     Dates: start: 20111222, end: 20120625
  5. KALETRA [Suspect]
     Indication: HIV INFECTION
     Route: 048
     Dates: start: 20120605, end: 20120627
  6. TRIMETHOPRIM + SULFAMETHOXAZOLE [Concomitant]
     Indication: PNEUMOCYSTIS JIROVECI PNEUMONIA
     Dosage: 160/800
     Dates: start: 20111222, end: 20120625

REACTIONS (4)
  - SEPSIS [None]
  - DIARRHOEA [None]
  - RESPIRATORY FAILURE [None]
  - HYPOKALAEMIA [None]
